FAERS Safety Report 5409152-8 (Version None)
Quarter: 2007Q3

REPORT INFORMATION
  Report Type: 
  Country: None (occurrence: None)
  Receive Date: 20070713
  Receipt Date: 20070504
  Transmission Date: 20080115
  Serious: Yes (Hospitalization)
  Sender: FDA-Public Use
  Company Number: US-JNJFOC-20061204961

PATIENT
  Age: 16 Year
  Sex: Female
  Weight: 45.3597 kg

DRUGS (1)
  1. ORTHO EVRA [Suspect]
     Indication: PREMENSTRUAL SYNDROME
     Dosage: TRANSDERMAL
     Route: 062
     Dates: start: 20040101, end: 20060630

REACTIONS (3)
  - DEEP VEIN THROMBOSIS [None]
  - DYSPNOEA [None]
  - OFF LABEL USE [None]
